FAERS Safety Report 17963351 (Version 1)
Quarter: 2020Q2

REPORT INFORMATION
  Report Type: Spontaneous
  Country: PT (occurrence: PT)
  Receive Date: 20200630
  Receipt Date: 20200630
  Transmission Date: 20200714
  Serious: Yes (Hospitalization, Other)
  Sender: FDA-Public Use
  Company Number: PT-MYLANLABS-2019M1096169

PATIENT
  Age: 68 Year
  Sex: Male

DRUGS (7)
  1. ZOLEDRONIC ACID [Suspect]
     Active Substance: ZOLEDRONIC ACID
     Indication: METASTASES TO BONE
     Dosage: 4 MG/4 WEEKS(1 IV ADMINISTRATION FOR 15MIN)
     Route: 042
     Dates: start: 2015, end: 2016
  2. TRIPTORELIN [Concomitant]
     Active Substance: TRIPTORELIN
     Indication: METASTASES TO BONE
     Dosage: UNK
     Dates: start: 201502
  3. TRIPTORELIN [Concomitant]
     Active Substance: TRIPTORELIN
     Indication: PROSTATE CANCER
  4. CYPROTERONE ACETATE [Concomitant]
     Active Substance: CYPROTERONE ACETATE
     Indication: METASTASES TO BONE
     Dosage: UNK
     Dates: start: 201502
  5. ZOLEDRONIC ACID [Suspect]
     Active Substance: ZOLEDRONIC ACID
     Indication: PROSTATE CANCER
     Dosage: 4 MG FOR 15 MINUTES, EVERY 4 WEEKS
     Route: 042
     Dates: start: 201502
  6. CYPROTERONE ACETATE [Concomitant]
     Active Substance: CYPROTERONE ACETATE
     Indication: PROSTATE CANCER
  7. LYSINE [Concomitant]
     Active Substance: LYSINE
     Indication: PRODUCT USED FOR UNKNOWN INDICATION
     Dosage: UNK
     Route: 065

REACTIONS (21)
  - Acute kidney injury [Recovering/Resolving]
  - Normocytic anaemia [Recovered/Resolved]
  - Hyperphosphaturia [Recovered/Resolved]
  - Hyperuricosuria [Recovered/Resolved]
  - Decreased appetite [Recovered/Resolved]
  - Hypouricaemia [Recovered/Resolved]
  - Hyperkaliuria [Recovered/Resolved]
  - Vitamin B12 deficiency [Recovered/Resolved]
  - Renal tubular dysfunction [Recovered/Resolved]
  - Hypercreatininaemia [Recovering/Resolving]
  - Hypokalaemia [Recovered/Resolved]
  - Proteinuria [Recovered/Resolved]
  - Hypomagnesaemia [Recovered/Resolved]
  - Anaemia [Unknown]
  - Nephropathy toxic [Recovering/Resolving]
  - Hypophosphataemia [Recovered/Resolved]
  - Asthenia [Recovered/Resolved]
  - Acidosis hyperchloraemic [Recovered/Resolved]
  - Hypocalcaemia [Recovered/Resolved]
  - Hypercalciuria [Recovered/Resolved]
  - Fanconi syndrome [Recovering/Resolving]

NARRATIVE: CASE EVENT DATE: 201604
